FAERS Safety Report 4356388-3 (Version None)
Quarter: 2004Q2

REPORT INFORMATION
  Report Type: 
  Country: None (occurrence: None)
  Receive Date: 20040511
  Receipt Date: 20040511
  Transmission Date: 20050107
  Serious: No
  Sender: FDA-Public Use
  Company Number: None

PATIENT
  Sex: Female

DRUGS (2)
  1. ZYRTEC [Suspect]
     Indication: RHINITIS SEASONAL
     Dosage: 7.5 MG ONCE DAILY ORAL
     Route: 048
     Dates: start: 20020918, end: 20040510
  2. SINGULAIR [Concomitant]

REACTIONS (1)
  - TOOTH DISCOLOURATION [None]
